FAERS Safety Report 25847996 (Version 1)
Quarter: 2025Q3

REPORT INFORMATION
  Report Type: Spontaneous
  Country: CA (occurrence: CA)
  Receive Date: 20250925
  Receipt Date: 20250925
  Transmission Date: 20251021
  Serious: Yes (Other)
  Sender: INTERCEPT PHARMACEUTICALS
  Company Number: CA-ADVANZ PHARMA-202404003586

PATIENT
  Sex: Female

DRUGS (4)
  1. OCALIVA [Suspect]
     Active Substance: OBETICHOLIC ACID
     Indication: Primary biliary cholangitis
     Route: 048
     Dates: start: 20211202
  2. OCALIVA [Suspect]
     Active Substance: OBETICHOLIC ACID
     Route: 048
  3. URSODIOL [Concomitant]
     Active Substance: URSODIOL
     Route: 048
     Dates: start: 2020
  4. BEZAFIBRATE [Concomitant]
     Active Substance: BEZAFIBRATE
     Dates: start: 20240312

REACTIONS (2)
  - Autoimmune hepatitis [Unknown]
  - Blood alkaline phosphatase abnormal [Recovering/Resolving]
